FAERS Safety Report 7163596-5 (Version None)
Quarter: 2010Q4

REPORT INFORMATION
  Report Type: 
  Country: None (occurrence: None)
  Receive Date: 20101215
  Receipt Date: 20100512
  Transmission Date: 20110411
  Serious: Yes (Other)
  Sender: FDA-Public Use
  Company Number: US-PFIZER INC-2010047341

PATIENT
  Sex: Female
  Weight: 65.77 kg

DRUGS (8)
  1. LYRICA [Suspect]
     Indication: FIBROMYALGIA
     Dosage: 50 MG, DAILY
     Route: 048
     Dates: start: 20080601, end: 20080701
  2. PREMARIN [Concomitant]
     Dosage: UNK
  3. WELLBUTRIN [Concomitant]
     Dosage: UNK
  4. ALBUTEROL [Concomitant]
     Dosage: UNK
  5. DOXEPIN [Concomitant]
     Dosage: UNK
  6. PREVACID [Concomitant]
     Dosage: UNK
  7. XOPENEX [Concomitant]
     Dosage: UNK
  8. TOPROL-XL [Concomitant]
     Dosage: UNK

REACTIONS (3)
  - METAMORPHOPSIA [None]
  - VISION BLURRED [None]
  - VISUAL FIELD DEFECT [None]
